FAERS Safety Report 12196909 (Version 1)
Quarter: 2016Q1

REPORT INFORMATION
  Report Type: Spontaneous
  Country: NL (occurrence: NL)
  Receive Date: 20160321
  Receipt Date: 20160321
  Transmission Date: 20160526
  Serious: Yes (Hospitalization, Other)
  Sender: FDA-Public Use
  Company Number: NL-PFIZER INC-2016161528

PATIENT
  Age: 57 Year
  Sex: Male

DRUGS (10)
  1. EPHEDRINE. [Concomitant]
     Active Substance: EPHEDRINE
     Indication: HYPOTENSION
     Dosage: UNK
  2. ISOPRENALINE [Concomitant]
     Active Substance: ISOPROTERENOL HYDROCHLORIDE
     Dosage: UNK
  3. ETOMIDATE. [Interacting]
     Active Substance: ETOMIDATE
     Indication: ENDOTRACHEAL INTUBATION
     Dosage: UNK
  4. NOREPINEPHRINE [Concomitant]
     Active Substance: NOREPINEPHRINE\NOREPINEPHRINE BITARTRATE
     Dosage: UNK
  5. VERAPAMIL HCL [Interacting]
     Active Substance: VERAPAMIL HYDROCHLORIDE
     Indication: ATRIAL FIBRILLATION
     Dosage: 80 MG, 1X/DAY
  6. PERINDOPRIL [Concomitant]
     Active Substance: PERINDOPRIL
     Indication: ATRIAL FIBRILLATION
     Dosage: UNK
  7. PRAVASTATIN [Concomitant]
     Active Substance: PRAVASTATIN\PRAVASTATIN SODIUM
     Indication: ATRIAL FIBRILLATION
     Dosage: UNK
  8. CEFAZOLIN [Suspect]
     Active Substance: CEFAZOLIN
     Indication: ENDOTRACHEAL INTUBATION
     Dosage: UNK UNK, 1X/DAY
  9. GABAPENTIN. [Concomitant]
     Active Substance: GABAPENTIN
     Indication: ATRIAL FIBRILLATION
     Dosage: UNK
  10. ROCURONIUM [Concomitant]
     Active Substance: ROCURONIUM BROMIDE
     Indication: ENDOTRACHEAL INTUBATION
     Dosage: UNK

REACTIONS (3)
  - Drug interaction [Unknown]
  - Shock [Unknown]
  - Condition aggravated [Unknown]
